FAERS Safety Report 14657625 (Version 2)
Quarter: 2019Q2

REPORT INFORMATION
  Report Type: Report from Study
  Country: US (occurrence: US)
  Receive Date: 20180320
  Receipt Date: 20190613
  Transmission Date: 20190711
  Serious: Yes (Other)
  Sender: FDA-Public Use
  Company Number: PHEH2018US009539

PATIENT
  Sex: Female

DRUGS (2)
  1. XYZAL [Concomitant]
     Active Substance: LEVOCETIRIZINE DIHYDROCHLORIDE
     Indication: PRODUCT USED FOR UNKNOWN INDICATION
     Route: 065
  2. COSENTYX [Suspect]
     Active Substance: SECUKINUMAB
     Indication: PSORIASIS
     Dosage: 300 MG, Q4W
     Route: 065
     Dates: start: 20170310

REACTIONS (8)
  - Dermatitis acneiform [Unknown]
  - Ear infection [Unknown]
  - Seborrhoeic dermatitis [Unknown]
  - Inappropriate schedule of product administration [Unknown]
  - Blood prolactin increased [Unknown]
  - Bursitis infective [Unknown]
  - External ear cellulitis [Unknown]
  - Arthralgia [Unknown]

NARRATIVE: CASE EVENT DATE: 201711
